FAERS Safety Report 8695900 (Version 2)
Quarter: 2013Q4

REPORT INFORMATION
  Report Type: Spontaneous
  Country: US (occurrence: US)
  Receive Date: 20120801
  Receipt Date: 20131106
  Transmission Date: 20140711
  Serious: Yes (Other)
  Sender: FDA-Public Use
  Company Number: US-009507513-1207USA010571

PATIENT
  Age: 73 Year
  Sex: Female

DRUGS (3)
  1. ZOCOR [Suspect]
     Route: 048
  2. RAMIPRIL [Concomitant]
  3. FUSIDIC ACID [Concomitant]

REACTIONS (2)
  - Pain in extremity [Unknown]
  - Myalgia [Unknown]
